FAERS Safety Report 5515405-5 (Version None)
Quarter: 2007Q4

REPORT INFORMATION
  Report Type: 
  Country: None (occurrence: None)
  Receive Date: 20071113
  Receipt Date: 20070208
  Transmission Date: 20080405
  Serious: No
  Sender: FDA-Public Use
  Company Number: A0638907A

PATIENT
  Age: 68 Year
  Sex: Male

DRUGS (3)
  1. COREG [Suspect]
     Indication: HYPERTENSION
     Dosage: 12.5MG TWICE PER DAY
     Route: 048
  2. VASOTEC [Concomitant]
  3. ALLOPURINOL [Concomitant]

REACTIONS (2)
  - DIARRHOEA [None]
  - FATIGUE [None]
